FAERS Safety Report 4637677-1 (Version None)
Quarter: 2005Q2

REPORT INFORMATION
  Report Type: 
  Country: None (occurrence: None)
  Receive Date: 20050328
  Receipt Date: 20041213
  Transmission Date: 20051028
  Serious: No
  Sender: FDA-Public Use
  Company Number: USA041285964

PATIENT
  Age: 17 Year
  Sex: Male

DRUGS (2)
  1. STRATTERA [Suspect]
     Dosage: 40 MG/2 DAY
     Route: 048
     Dates: start: 20040924
  2. EFFEXOR [Concomitant]

REACTIONS (1)
  - AMPHETAMINES POSITIVE [None]
